FAERS Safety Report 7280906-9 (Version None)
Quarter: 2011Q1

REPORT INFORMATION
  Report Type: 
  Country: None (occurrence: None)
  Receive Date: 20110208
  Receipt Date: 20110125
  Transmission Date: 20110831
  Serious: Yes (Hospitalization)
  Sender: FDA-Public Use
  Company Number: FI-CELGENEUS-055-21880-11012659

PATIENT
  Sex: Male
  Weight: 91 kg

DRUGS (7)
  1. DEXAMETHASONE [Concomitant]
     Route: 065
     Dates: start: 20100115
  2. HYDREX SEMI [Concomitant]
     Route: 065
     Dates: start: 20100621
  3. ZOLPIDEM TARTRATE [Concomitant]
     Route: 065
  4. REVLIMID [Suspect]
     Route: 048
     Dates: start: 20101101
  5. ESCOR [Concomitant]
     Route: 065
     Dates: start: 20100621
  6. ATACAND [Concomitant]
     Route: 065
     Dates: start: 20100115
  7. REVLIMID [Suspect]
     Indication: MULTIPLE MYELOMA
     Route: 048
     Dates: start: 20101011, end: 20101026

REACTIONS (3)
  - PYREXIA [None]
  - CUTANEOUS VASCULITIS [None]
  - FACE OEDEMA [None]
